FAERS Safety Report 4333973-6 (Version None)
Quarter: 2004Q2

REPORT INFORMATION
  Report Type: 
  Country: None (occurrence: None)
  Receive Date: 20040402
  Receipt Date: 20040316
  Transmission Date: 20050107
  Serious: Yes (Death)
  Sender: FDA-Public Use
  Company Number: 2004S1000014

PATIENT
  Age: 68 Year
  Sex: Female
  Weight: 48.5349 kg

DRUGS (11)
  1. OXANDRIN [Suspect]
     Indication: CACHEXIA
     Dosage: 10 MG; BID; PO
     Route: 048
     Dates: start: 20011106, end: 20011107
  2. OXANDRIN [Suspect]
     Indication: WEIGHT DECREASED
     Dosage: 10 MG; BID; PO
     Route: 048
     Dates: start: 20011106, end: 20011107
  3. LEVOXYL [Concomitant]
  4. ACCUPRIL [Concomitant]
  5. REMERON [Concomitant]
  6. DECADRON [Concomitant]
  7. ZOFRAN [Concomitant]
  8. BENZONATATE [Concomitant]
  9. M-OXY [Concomitant]
  10. COMPAZINE [Concomitant]
  11. OXANDROLONE [Concomitant]

REACTIONS (1)
  - RESPIRATORY FAILURE [None]
